FAERS Safety Report 6095419-X (Version None)
Quarter: 2009Q1

REPORT INFORMATION
  Report Type: 
  Country: None (occurrence: None)
  Receive Date: 20090227
  Receipt Date: 20080327
  Transmission Date: 20090719
  Serious: No
  Sender: FDA-Public Use
  Company Number: A0717867A

PATIENT
  Age: 9 Year
  Sex: Male

DRUGS (7)
  1. LAMICTAL [Suspect]
     Dosage: 100MG TWICE PER DAY
     Route: 048
     Dates: start: 20030101
  2. KEPPRA [Concomitant]
  3. KLONOPIN [Concomitant]
  4. PREVACID [Concomitant]
  5. RISPERDAL [Concomitant]
  6. REGLAN [Concomitant]
  7. MIRALAX [Concomitant]

REACTIONS (3)
  - AGITATION [None]
  - DYSKINESIA [None]
  - RASH [None]
